FAERS Safety Report 8860207 (Version 1)
Quarter: 2012Q4

REPORT INFORMATION
  Report Type: 
  Country: US (occurrence: US)
  Receive Date: 20121025
  Receipt Date: 20121025
  Transmission Date: 20130627
  Serious: Yes (Hospitalization, Other)
  Sender: FDA-Public Use
  Company Number: US-JNJFOC-20120808143

PATIENT
  Age: 17 Year
  Sex: Female
  Weight: 42.7 kg

DRUGS (9)
  1. DOXORUBICIN [Suspect]
     Indication: ACUTE MYELOID LEUKAEMIA
     Route: 042
     Dates: start: 20120710, end: 20120710
  2. DOXORUBICIN [Suspect]
     Indication: ACUTE MYELOID LEUKAEMIA
     Route: 042
     Dates: start: 20120712, end: 20120712
  3. DOXORUBICIN [Suspect]
     Indication: ACUTE MYELOID LEUKAEMIA
     Dosage: total dose: 216 mg
     Route: 042
     Dates: start: 20120714, end: 20120714
  4. CYTARABINE [Suspect]
     Indication: ACUTE MYELOID LEUKAEMIA
     Dosage: total dose administered was 2288mg
     Route: 065
     Dates: start: 20120710, end: 20120717
  5. VP-16 [Suspect]
     Indication: ACUTE MYELOID LEUKAEMIA
     Dosage: total dose: 715mg
     Route: 065
     Dates: start: 20120710, end: 20120714
  6. VELCADE [Suspect]
     Indication: ACUTE MYELOID LEUKAEMIA
     Route: 065
     Dates: start: 20120710, end: 20120710
  7. VELCADE [Suspect]
     Indication: ACUTE MYELOID LEUKAEMIA
     Route: 065
     Dates: start: 20120713, end: 20120713
  8. VELCADE [Suspect]
     Indication: ACUTE MYELOID LEUKAEMIA
     Dosage: total dose 5.7mg
     Route: 065
     Dates: start: 20120717, end: 20120717
  9. VORICONAZOLE [Concomitant]
     Route: 065

REACTIONS (12)
  - Febrile neutropenia [Unknown]
  - Gastritis [Recovered/Resolved]
  - Peripheral sensory neuropathy [Not Recovered/Not Resolved]
  - Mucosal inflammation [Unknown]
  - Cholecystitis [Recovered/Resolved]
  - Rash generalised [Unknown]
  - Pain of skin [Unknown]
  - Palmar erythema [Unknown]
  - Nausea [Unknown]
  - Oedema peripheral [Unknown]
  - Skin exfoliation [Unknown]
  - Erythema [Unknown]
